FAERS Safety Report 18732443 (Version 1)
Quarter: 2021Q1

REPORT INFORMATION
  Report Type: Spontaneous
  Country: ES (occurrence: ES)
  Receive Date: 20210112
  Receipt Date: 20210112
  Transmission Date: 20210419
  Serious: Yes (Disabling)
  Sender: FDA-Public Use
  Company Number: ES-PFIZER INC-2021009505

PATIENT
  Age: 30 Year
  Sex: Male
  Weight: 80 kg

DRUGS (4)
  1. PRISTIQ EXTENDED?RELEASE [Suspect]
     Active Substance: DESVENLAFAXINE SUCCINATE
     Indication: IRRITABLE BOWEL SYNDROME
     Dosage: 50 MG, 1X/DAY (1?0?0)
     Route: 048
     Dates: start: 20191210, end: 20191225
  2. AMITRIPTYLINE HYDROCHLORIDE. [Suspect]
     Active Substance: AMITRIPTYLINE HYDROCHLORIDE
     Indication: IRRITABLE BOWEL SYNDROME
     Dosage: 10 MG, 2X/DAY 1?0?1, EACH PILL OF 10 MG
     Route: 048
     Dates: start: 20191227, end: 20200109
  3. MIRTAZAPINA ARISTO [Suspect]
     Active Substance: MIRTAZAPINE
     Indication: IRRITABLE BOWEL SYNDROME
     Dosage: 15 MG, 1X/DAY (0?0?1)
     Route: 048
     Dates: start: 20181212
  4. IMIPRAMINE HYDROCHLORIDE. [Suspect]
     Active Substance: IMIPRAMINE HYDROCHLORIDE
     Indication: IRRITABLE BOWEL SYNDROME
     Dosage: UNK, 1X/DAY (1?0?0)
     Route: 048
     Dates: start: 20200110, end: 20200210

REACTIONS (2)
  - Off label use [Unknown]
  - Neuralgia [Not Recovered/Not Resolved]

NARRATIVE: CASE EVENT DATE: 20191210
